FAERS Safety Report 23237787 (Version 1)
Quarter: 2023Q4

REPORT INFORMATION
  Report Type: Spontaneous
  Country: US (occurrence: US)
  Receive Date: 20231128
  Receipt Date: 20231128
  Transmission Date: 20240110
  Serious: Yes (Life-Threatening, Hospitalization, Other)
  Sender: FDA-Public Use
  Company Number: US-Accord-391491

PATIENT
  Age: 45 Year
  Sex: Male
  Weight: 82.6 kg

DRUGS (2)
  1. AMLODIPINE [Suspect]
     Active Substance: AMLODIPINE BESYLATE
     Route: 048
  2. ATENOLOL [Suspect]
     Active Substance: ATENOLOL
     Route: 048

REACTIONS (3)
  - Overdose [Unknown]
  - Hypotension [Unknown]
  - Suicide attempt [Unknown]
